FAERS Safety Report 16692715 (Version 2)
Quarter: 2019Q3

REPORT INFORMATION
  Report Type: Spontaneous
  Country: JP (occurrence: JP)
  Receive Date: 20190812
  Receipt Date: 20190814
  Transmission Date: 20191004
  Serious: No
  Sender: FDA-Public Use
  Company Number: JP-ASTRAZENECA-2019SF12515

PATIENT
  Age: 23 Year
  Sex: Female

DRUGS (4)
  1. FORXIGA [Suspect]
     Active Substance: DAPAGLIFLOZIN
     Indication: TYPE 1 DIABETES MELLITUS
     Route: 048
     Dates: start: 20190521, end: 20190625
  2. INSULIN [Concomitant]
     Active Substance: INSULIN NOS
     Dosage: DAILY DOSE: 2-0-2
     Route: 058
     Dates: start: 20161101
  3. SEIBULE [Concomitant]
     Active Substance: MIGLITOL
     Route: 048
     Dates: start: 20170926
  4. NOVORAPID [Concomitant]
     Active Substance: INSULIN ASPART
     Dosage: DAILY DOSE: 4-4-4
     Route: 058
     Dates: start: 20161101

REACTIONS (2)
  - Ketosis [Recovered/Resolved]
  - Malaise [Recovered/Resolved]

NARRATIVE: CASE EVENT DATE: 20190528
